FAERS Safety Report 7081627-8 (Version None)
Quarter: 2010Q4

REPORT INFORMATION
  Report Type: 
  Country: None (occurrence: None)
  Receive Date: 20101103
  Receipt Date: 20101022
  Transmission Date: 20110411
  Serious: Yes (Other)
  Sender: FDA-Public Use
  Company Number: PHHY2010CA71491

PATIENT
  Sex: Female

DRUGS (2)
  1. ACLASTA [Suspect]
     Indication: OSTEOPOROSIS
     Dosage: UNK
     Dates: start: 20091009
  2. ACLASTA [Suspect]
     Dosage: UNK
     Dates: start: 20101022

REACTIONS (2)
  - BLADDER DISORDER [None]
  - HYSTERECTOMY [None]
